FAERS Safety Report 5831742-9 (Version None)
Quarter: 2008Q3

REPORT INFORMATION
  Report Type: 
  Country: None (occurrence: None)
  Receive Date: 20080803
  Receipt Date: 20080723
  Transmission Date: 20090109
  Serious: Yes (Hospitalization)
  Sender: FDA-Public Use
  Company Number: PHHY2008FR15328

PATIENT
  Age: 54 Year
  Sex: Female

DRUGS (2)
  1. ZOMETA [Suspect]
     Indication: MULTIPLE MYELOMA
     Dosage: 1 PERFUSION QMO
     Dates: start: 20080301
  2. ZOMETA [Suspect]
     Dosage: 1 PERFUSION QMO
     Dates: end: 20080601

REACTIONS (3)
  - BLOOD CREATININE INCREASED [None]
  - FANCONI SYNDROME [None]
  - RENAL FAILURE [None]
